FAERS Safety Report 5624625-0 (Version None)
Quarter: 2008Q1

REPORT INFORMATION
  Report Type: 
  Country: None (occurrence: None)
  Receive Date: 20080213
  Receipt Date: 20080131
  Transmission Date: 20080703
  Serious: Yes (Hospitalization)
  Sender: FDA-Public Use
  Company Number: BR-AMGEN-US247498

PATIENT
  Sex: Female
  Weight: 56 kg

DRUGS (12)
  1. ENBREL [Suspect]
     Indication: RHEUMATOID ARTHRITIS
     Route: 058
     Dates: start: 20070802, end: 20071016
  2. ENBREL [Suspect]
     Route: 058
     Dates: start: 20071017
  3. ENBREL [Suspect]
     Route: 058
     Dates: start: 20071101
  4. EUTHYROX [Concomitant]
     Indication: HYPOTHYROIDISM
     Dosage: UNKNOWN
     Route: 048
  5. EUTHYROX [Concomitant]
     Dosage: UNKNOWN
     Route: 048
  6. CHLOROQUINE PHOSPHATE [Concomitant]
     Indication: RHEUMATOID ARTHRITIS
     Route: 048
     Dates: start: 20070101
  7. RANITIDINE [Concomitant]
     Indication: GASTRITIS
     Route: 048
     Dates: start: 20070101
  8. FOLIC ACID [Concomitant]
     Route: 048
     Dates: start: 20070101
  9. ACETAMINOPHEN [Concomitant]
     Route: 048
     Dates: start: 20070101
  10. PREDNISONE TAB [Concomitant]
     Indication: RHEUMATOID ARTHRITIS
     Route: 048
  11. METHOTREXATE [Concomitant]
     Indication: RHEUMATOID ARTHRITIS
     Route: 048
  12. PIROXICAM [Concomitant]
     Route: 048
     Dates: start: 20070101

REACTIONS (16)
  - CELLULITIS [None]
  - DYSPHONIA [None]
  - DYSPNOEA [None]
  - FEELING COLD [None]
  - HYPERKERATOSIS [None]
  - HYPERTENSION [None]
  - INJECTION SITE CELLULITIS [None]
  - INJECTION SITE REACTION [None]
  - NAIL INFECTION [None]
  - NASAL CONGESTION [None]
  - PAIN IN EXTREMITY [None]
  - SKIN DISORDER [None]
  - SKIN REACTION [None]
  - SOMNOLENCE [None]
  - SWELLING FACE [None]
  - WEIGHT INCREASED [None]
